FAERS Safety Report 13923490 (Version 1)
Quarter: 2017Q3

REPORT INFORMATION
  Report Type: Spontaneous
  Country: US (occurrence: US)
  Receive Date: 20170830
  Receipt Date: 20170830
  Transmission Date: 20171127
  Serious: Yes (Disabling)
  Sender: FDA-Public Use
  Company Number: None

PATIENT
  Age: 49 Year
  Sex: Female
  Weight: 69.75 kg

DRUGS (4)
  1. MIGRANAL [Suspect]
     Active Substance: DIHYDROERGOTAMINE MESYLATE
     Indication: MIGRAINE
     Dosage: QUANTITY:1 SPRAY(S);?
     Route: 055
     Dates: start: 20170501, end: 20170501
  2. METHADONE [Concomitant]
     Active Substance: METHADONE HYDROCHLORIDE
  3. MULTIVITAMIN [Concomitant]
     Active Substance: VITAMINS
  4. GENERIC PROZAC [Concomitant]
     Active Substance: FLUOXETINE HYDROCHLORIDE

REACTIONS (2)
  - Ear discomfort [None]
  - Hypoacusis [None]

NARRATIVE: CASE EVENT DATE: 20170501
